FAERS Safety Report 8119907-7 (Version None)
Quarter: 2012Q1

REPORT INFORMATION
  Report Type: 
  Country: None (occurrence: None)
  Receive Date: 20120207
  Receipt Date: 20120127
  Transmission Date: 20120608
  Serious: Yes (Hospitalization, Other)
  Sender: FDA-Public Use
  Company Number: US-ELI_LILLY_AND_COMPANY-US201112001363

PATIENT
  Sex: Female
  Weight: 100.68 kg

DRUGS (11)
  1. PRAVASTATIN [Concomitant]
     Dosage: UNK, QD
  2. LANTUS [Concomitant]
  3. BYETTA [Suspect]
     Dosage: 10 UG, BID
     Route: 058
     Dates: start: 20110821
  4. GLIMEPIRIDE [Concomitant]
     Indication: TYPE 2 DIABETES MELLITUS
     Dosage: UNK UNK, QD
     Route: 048
  5. PRAVACHOL [Concomitant]
     Indication: BLOOD CHOLESTEROL
     Dosage: UNK UNK, QD
     Route: 048
  6. BYETTA [Suspect]
     Indication: TYPE 2 DIABETES MELLITUS
     Dosage: 5 UG, BID
     Route: 058
     Dates: start: 20110721, end: 20110821
  7. HYDROCHLOROTHIAZIDE [Concomitant]
     Indication: HYPERTENSION
     Dosage: UNK UNK, QD
     Route: 048
  8. SYNTHROID [Concomitant]
     Dosage: UNK UNK, QD
     Route: 048
  9. CALCIUM [Concomitant]
     Dosage: UNK UNK, QD
     Route: 048
  10. VITAMIN D [Concomitant]
     Dosage: UNK, QD
  11. LISINOPRIL [Concomitant]
     Indication: HYPERTENSION
     Dosage: UNK UNK, QD
     Route: 048

REACTIONS (5)
  - LOSS OF CONSCIOUSNESS [None]
  - BLOOD GLUCOSE INCREASED [None]
  - DEHYDRATION [None]
  - DIZZINESS [None]
  - FEELING ABNORMAL [None]
